FAERS Safety Report 8159533-7 (Version None)
Quarter: 2012Q1

REPORT INFORMATION
  Report Type: 
  Country: None (occurrence: None)
  Receive Date: 20120223
  Receipt Date: 20120213
  Transmission Date: 20120608
  Serious: Yes (Other)
  Sender: FDA-Public Use
  Company Number: US-ROCHE-1035865

PATIENT
  Sex: Female

DRUGS (5)
  1. ALBUTEROL [Concomitant]
  2. CETIRIZINE HCL [Concomitant]
  3. PROFLEX [Concomitant]
     Route: 048
  4. EPIFRIN [Concomitant]
  5. XOLAIR [Suspect]
     Indication: PRODUCT USED FOR UNKNOWN INDICATION
     Route: 058
     Dates: start: 20060509, end: 20120126

REACTIONS (2)
  - DYSPHAGIA [None]
  - HYPERSENSITIVITY [None]
